FAERS Safety Report 9840435 (Version 1)
Quarter: 2013Q4

REPORT INFORMATION
  Report Type: Spontaneous
  Country: US (occurrence: None)
  Receive Date: 20131211
  Receipt Date: 20131211
  Transmission Date: 20140711
  Serious: No
  Sender: FDA-Public Use
  Company Number: ALL1-2012-03525

PATIENT
  Age: 28 Year
  Sex: Female

DRUGS (1)
  1. FIRAZYR [Suspect]
     Indication: HEREDITARY ANGIOEDEMA
     Dosage: OTHER (AS DIRECTED)
     Route: 058
     Dates: start: 20120622, end: 20120720

REACTIONS (1)
  - Drug ineffective [None]
